FAERS Safety Report 13566705 (Version 4)
Quarter: 2017Q3

REPORT INFORMATION
  Report Type: Report from Study
  Country: US (occurrence: US)
  Receive Date: 20170522
  Receipt Date: 20170825
  Transmission Date: 20171127
  Serious: Yes (Hospitalization, Other)
  Sender: FDA-Public Use
  Company Number: US-GILEAD-2017-0273751

PATIENT
  Age: 45 Year
  Sex: Female

DRUGS (5)
  1. POTASSIUM [Concomitant]
     Active Substance: POTASSIUM
  2. AMBRISENTAN [Suspect]
     Active Substance: AMBRISENTAN
     Indication: PRODUCT USED FOR UNKNOWN INDICATION
     Dosage: 10 MG, QD
     Route: 065
  3. SILDENAFIL CITRATE. [Suspect]
     Active Substance: SILDENAFIL CITRATE
     Indication: PRODUCT USED FOR UNKNOWN INDICATION
     Dosage: UNK
     Route: 065
  4. MAGNESIUM [Concomitant]
     Active Substance: MAGNESIUM
  5. AMBRISENTAN [Suspect]
     Active Substance: AMBRISENTAN
     Dosage: 5 MG, QD
     Route: 065
     Dates: start: 20170419

REACTIONS (13)
  - Electrolyte imbalance [Unknown]
  - Blood electrolytes abnormal [Unknown]
  - Migraine [Unknown]
  - Chest discomfort [Unknown]
  - Insomnia [Unknown]
  - Hepatic failure [Not Recovered/Not Resolved]
  - Unevaluable event [Unknown]
  - Drug hypersensitivity [Unknown]
  - Malaise [Unknown]
  - Urinary retention [Unknown]
  - Dehydration [Not Recovered/Not Resolved]
  - Fluid retention [Unknown]
  - Irritability [Unknown]
